FAERS Safety Report 5162421-1 (Version None)
Quarter: 2006Q4

REPORT INFORMATION
  Report Type: 
  Country: None (occurrence: None)
  Receive Date: 20061128
  Receipt Date: 20061128
  Transmission Date: 20070319
  Serious: Yes (Other)
  Sender: FDA-Public Use
  Company Number: None

PATIENT
  Age: 84 Year
  Sex: Male
  Weight: 89.3586 kg

DRUGS (14)
  1. TRAVATAN [Suspect]
     Indication: GLAUCOMA
     Dosage: 1 DROP OU HS
     Dates: start: 20040712, end: 20060829
  2. FUROSEMIDE [Concomitant]
  3. PROSCAR [Concomitant]
  4. CELLUVISC [Concomitant]
  5. FELODIPINE [Concomitant]
  6. NITRO-DUR [Concomitant]
  7. SIMVASTATIN [Concomitant]
  8. ASPIRIN [Concomitant]
  9. METOPROLOL SUCCINATE [Concomitant]
  10. POTASSIUM CHLORIDE [Concomitant]
  11. M.V.I. [Concomitant]
  12. OMEPRAZOLE [Concomitant]
  13. COSOPT [Concomitant]
  14. BRIMONIDINE TARTRATE [Concomitant]

REACTIONS (2)
  - ERYTHEMA OF EYELID [None]
  - PRURITUS [None]
